FAERS Safety Report 18646651 (Version 1)
Quarter: 2020Q4

REPORT INFORMATION
  Report Type: Spontaneous
  Country: US (occurrence: US)
  Receive Date: 20201222
  Receipt Date: 20201222
  Transmission Date: 20210114
  Serious: No
  Sender: FDA-Public Use
  Company Number: US-CELLTRION INC.-2020US031729

PATIENT

DRUGS (5)
  1. TRUXIMA [Suspect]
     Active Substance: RITUXIMAB-ABBS
     Indication: MICROSCOPIC POLYANGIITIS
     Dosage: 670 MILLIGRAM, EVERY 7 DAYS
     Route: 042
     Dates: start: 20201111
  2. TRUXIMA [Suspect]
     Active Substance: RITUXIMAB-ABBS
     Dosage: 670 MILLIGRAM, EVERY 7 DAYS
     Route: 042
     Dates: start: 20201118
  3. TRUXIMA [Suspect]
     Active Substance: RITUXIMAB-ABBS
     Dosage: 670 MILLIGRAM, EVERY 7 DAYS
     Route: 042
     Dates: start: 20201201
  4. TRUXIMA [Suspect]
     Active Substance: RITUXIMAB-ABBS
     Indication: INVESTIGATION ABNORMAL
     Dosage: 670 MILLIGRAM, EVERY 7 DAYS
     Route: 042
     Dates: start: 20201111
  5. TRUXIMA [Suspect]
     Active Substance: RITUXIMAB-ABBS
     Dosage: 670 MILLIGRAM, EVERY 7 DAYS
     Route: 042
     Dates: start: 20201125

REACTIONS (4)
  - Constipation [Recovered/Resolved]
  - Off label use [Unknown]
  - Off label use [Unknown]
  - Overdose [Unknown]

NARRATIVE: CASE EVENT DATE: 20201111
